FAERS Safety Report 18729445 (Version 3)
Quarter: 2021Q1

REPORT INFORMATION
  Report Type: Spontaneous
  Country: US (occurrence: US)
  Receive Date: 20210112
  Receipt Date: 20210202
  Transmission Date: 20210419
  Serious: Yes (Death, Other)
  Sender: FDA-Public Use
  Company Number: US-DECIPHERA PHARMACEUTICALS LLC-2020-US-000790

PATIENT
  Age: 84 Year
  Sex: Male

DRUGS (1)
  1. QINLOCK [Suspect]
     Active Substance: RIPRETINIB
     Indication: GASTROINTESTINAL STROMAL TUMOUR
     Dosage: 150 MILLIGRAM, QD
     Route: 048

REACTIONS (4)
  - Life expectancy shortened [Not Recovered/Not Resolved]
  - Hospice care [Not Recovered/Not Resolved]
  - Death [Fatal]
  - Tumour excision [Unknown]

NARRATIVE: CASE EVENT DATE: 20210115
